FAERS Safety Report 10081917 (Version 1)
Quarter: 2014Q2

REPORT INFORMATION
  Report Type: Spontaneous
  Country: US (occurrence: US)
  Receive Date: 20140416
  Receipt Date: 20140416
  Transmission Date: 20141212
  Serious: Yes (Other)
  Sender: FDA-Public Use
  Company Number: US-GLAXOSMITHKLINE-A1069672A

PATIENT
  Age: 67 Year
  Sex: Female

DRUGS (1)
  1. LOVAZA [Suspect]
     Indication: BLOOD TRIGLYCERIDES INCREASED
     Dosage: 1G UNKNOWN
     Route: 065
     Dates: start: 20090109

REACTIONS (2)
  - Cerebrovascular accident [Unknown]
  - Amnesia [Not Recovered/Not Resolved]
